FAERS Safety Report 8468483-8 (Version None)
Quarter: 2012Q2

REPORT INFORMATION
  Report Type: 
  Country: None (occurrence: None)
  Receive Date: 20120626
  Receipt Date: 20120613
  Transmission Date: 20120825
  Serious: Yes (Death, Hospitalization, Other)
  Sender: FDA-Public Use
  Company Number: JP-ROCHE-1047188

PATIENT
  Age: 74 Year
  Sex: Female
  Weight: 35 kg

DRUGS (10)
  1. REBAMIPIDE [Concomitant]
     Dosage: DOSAGE IS UNCERTAIN.
     Route: 048
  2. FLUOROURACIL [Concomitant]
     Indication: RECTAL CANCER
     Dosage: DOSAGE IS UNCERTAIN.
     Route: 040
  3. CRAVIT [Concomitant]
     Dosage: DOSAGE IS UNCERTAIN.
     Route: 048
  4. LEVOLEUCOVORIN CALCIUM [Concomitant]
     Indication: RECTAL CANCER
     Dosage: DOSAGE IS UNCERTAIN.
     Route: 041
  5. AVASTIN [Suspect]
     Indication: RECTAL CANCER
     Route: 041
     Dates: start: 20110728, end: 20110915
  6. FLUOROURACIL [Concomitant]
     Dosage: DOSAGE IS UNCERTAIN.
     Route: 041
  7. LOXOPROFEN [Concomitant]
     Dosage: DOSAGE IS UNCERTAIN.
     Route: 048
  8. CEFAZOLIN SODIUM [Concomitant]
     Dosage: DOSAGE IS UNCERTAIN.
     Route: 048
  9. OXALIPLATIN [Concomitant]
     Indication: RECTAL CANCER
     Dosage: DOSAGE IS UNCERTAIN.
     Route: 041
  10. ALDACTONE [Concomitant]
     Dosage: DOSAGE IS UNCERTAIN.
     Route: 048

REACTIONS (5)
  - TUMOUR PERFORATION [None]
  - DEATH [None]
  - PERITONITIS [None]
  - CONDITION AGGRAVATED [None]
  - RECTAL PERFORATION [None]
